FAERS Safety Report 9255733 (Version 1)
Quarter: 2013Q2

REPORT INFORMATION
  Report Type: Spontaneous
  Country: US (occurrence: US)
  Receive Date: 20130425
  Receipt Date: 20130425
  Transmission Date: 20140414
  Serious: No
  Sender: FDA-Public Use
  Company Number: US-ASTRAZENECA-2013SE25391

PATIENT
  Age: 79 Year
  Sex: Male
  Weight: 84.8 kg

DRUGS (11)
  1. SYMBICORT [Suspect]
     Indication: OROPHARYNGEAL PAIN
     Dosage: 160 MCG 2 PUFFS BID
     Route: 055
     Dates: start: 20130409
  2. SYMBICORT [Suspect]
     Indication: COUGH
     Dosage: 160 MCG 2 PUFFS BID
     Route: 055
     Dates: start: 20130409
  3. SYMBICORT [Suspect]
     Indication: BRONCHITIS
     Dosage: 160 MCG 2 PUFFS BID
     Route: 055
     Dates: start: 20130409
  4. LYRICA [Concomitant]
     Indication: PAIN
     Route: 048
  5. SIMVASTATIN [Concomitant]
     Indication: BLOOD CHOLESTEROL
     Route: 048
     Dates: start: 2003
  6. GLYBURIDE [Concomitant]
     Indication: DIABETES MELLITUS
     Route: 048
  7. ENALAPRIL MALEATE [Concomitant]
     Indication: CARDIAC DISORDER
     Route: 048
     Dates: start: 2006
  8. METOPROLOL TARTRATE [Concomitant]
     Route: 048
     Dates: start: 2006
  9. BABY ASPIRIN [Concomitant]
     Indication: CARDIAC DISORDER
     Route: 048
     Dates: start: 2006
  10. JANUVIA [Concomitant]
     Indication: DIABETES MELLITUS
     Route: 048
  11. LANTUS INSULIN [Concomitant]
     Indication: DIABETES MELLITUS
     Dosage: 14 UNITS QHS
     Route: 058
     Dates: start: 201210

REACTIONS (2)
  - Blood glucose increased [Unknown]
  - Off label use [Unknown]
